FAERS Safety Report 23111133 (Version 1)
Quarter: 2023Q4

REPORT INFORMATION
  Report Type: Spontaneous
  Country: KR (occurrence: KR)
  Receive Date: 20231026
  Receipt Date: 20231026
  Transmission Date: 20240109
  Serious: Yes (Other)
  Sender: FDA-Public Use
  Company Number: KR-JAZZ-2021-KR-002576

PATIENT
  Age: 31 Year
  Sex: Male
  Weight: 60 kg

DRUGS (1)
  1. DEFITELIO [Suspect]
     Active Substance: DEFIBROTIDE SODIUM
     Indication: Venoocclusive disease
     Dosage: STARTED ON DAY 13TH AFTER TRANSPLANT AND STOPPED AFTER 80 DAYS OF TRANSPLANT
     Route: 042

REACTIONS (3)
  - Haematochezia [Unknown]
  - Somnolence [Unknown]
  - Off label use [Unknown]
